FAERS Safety Report 6371218-6 (Version None)
Quarter: 2009Q3

REPORT INFORMATION
  Report Type: 
  Country: None (occurrence: None)
  Receive Date: 20090923
  Receipt Date: 20070501
  Transmission Date: 20100115
  Serious: Yes (Hospitalization, Disabling)
  Sender: FDA-Public Use
  Company Number: US-ASTRAZENECA-2006UW27871

PATIENT
  Age: 27 Year
  Sex: Female
  Weight: 90.7 kg

DRUGS (9)
  1. SEROQUEL [Suspect]
     Indication: BIPOLAR DISORDER
     Route: 048
     Dates: start: 19990212
  2. SEROQUEL [Suspect]
     Indication: INSOMNIA
     Route: 048
     Dates: start: 19990212
  3. SEROQUEL [Suspect]
     Dosage: 100-300 MG, DISPENSED
     Route: 048
     Dates: start: 20010111
  4. SEROQUEL [Suspect]
     Dosage: 100-300 MG, DISPENSED
     Route: 048
     Dates: start: 20010111
  5. HALDOL [Concomitant]
  6. ZYPREXA [Concomitant]
     Dates: start: 19960101
  7. DEPAKOTE [Concomitant]
     Dosage: 250 MG, TWO IN THE A.M. AND FOUR AT BEDTIME
  8. WELLBUTRIN [Concomitant]
     Route: 048
     Dates: start: 20010111
  9. BENZATROPIN [Concomitant]
     Dates: start: 20040615

REACTIONS (3)
  - DIABETES MELLITUS [None]
  - PARAESTHESIA [None]
  - TYPE 2 DIABETES MELLITUS [None]
